FAERS Safety Report 4584493-5 (Version None)
Quarter: 2005Q1

REPORT INFORMATION
  Report Type: 
  Country: None (occurrence: None)
  Receive Date: 20050125
  Receipt Date: 20041108
  Transmission Date: 20050727
  Serious: No
  Sender: FDA-Public Use
  Company Number: USA041183494

PATIENT
  Age: 76 Year
  Sex: Female

DRUGS (1)
  1. FORTEO [Suspect]
     Indication: PELVIC FRACTURE
     Dates: start: 20040701

REACTIONS (4)
  - ARTHRALGIA [None]
  - ARTHRITIS [None]
  - MOBILITY DECREASED [None]
  - PAIN [None]
